FAERS Safety Report 5307108-7 (Version None)
Quarter: 2007Q2

REPORT INFORMATION
  Report Type: 
  Country: None (occurrence: None)
  Receive Date: 20070425
  Receipt Date: 20070412
  Transmission Date: 20071010
  Serious: Yes (Other)
  Sender: FDA-Public Use
  Company Number: US-AMGEN-US219265

PATIENT
  Sex: Female
  Weight: 56.8 kg

DRUGS (8)
  1. ENBREL [Suspect]
     Indication: RHEUMATOID ARTHRITIS
     Route: 065
     Dates: start: 20070205, end: 20070308
  2. SULFASALAZINE [Concomitant]
     Route: 048
     Dates: start: 20070205
  3. ZYRTEC [Concomitant]
     Route: 048
     Dates: start: 20070205
  4. FIORICET [Concomitant]
     Route: 048
     Dates: start: 20070205, end: 20070326
  5. PENICILLIN [Concomitant]
     Route: 048
     Dates: start: 20070309, end: 20070316
  6. CAFFEINE [Concomitant]
     Route: 048
     Dates: start: 20070205
  7. IBUPROFEN [Concomitant]
     Route: 048
     Dates: start: 20070305, end: 20070307
  8. PRENATAL VITAMINS [Concomitant]
     Route: 048
     Dates: start: 20070313

REACTIONS (1)
  - ABORTION SPONTANEOUS [None]
